FAERS Safety Report 14792242 (Version 1)
Quarter: 2018Q2

REPORT INFORMATION
  Report Type: Spontaneous
  Country: US (occurrence: US)
  Receive Date: 20180413
  Receipt Date: 20180413
  Transmission Date: 20180711
  Serious: Yes (Death)
  Sender: FDA-Public Use
  Company Number: None

PATIENT
  Age: 51 Year
  Sex: Male

DRUGS (13)
  1. MORPHINE [Concomitant]
     Active Substance: MORPHINE
  2. TEMOZOLOMIDE. [Suspect]
     Active Substance: TEMOZOLOMIDE
     Indication: BRAIN NEOPLASM MALIGNANT
     Dosage: 390 MG QD1-5 OF 28D CYCLE BY MOUTH
     Route: 048
     Dates: start: 20170812
  3. LOSARTAN/HCT [Concomitant]
     Active Substance: HYDROCHLOROTHIAZIDE\LOSARTAN POTASSIUM
  4. FLUTICASONE SPR [Concomitant]
  5. TEMOZOLOMIDE. [Suspect]
     Active Substance: TEMOZOLOMIDE
     Indication: BRAIN NEOPLASM MALIGNANT
  6. AMOX/KCLAV [Concomitant]
  7. DULOXETINE. [Concomitant]
     Active Substance: DULOXETINE
  8. GLIPIZIDE. [Concomitant]
     Active Substance: GLIPIZIDE
  9. METFORMIN [Concomitant]
     Active Substance: METFORMIN HYDROCHLORIDE
  10. CIPROFLOXACN [Concomitant]
     Active Substance: CIPROFLOXACIN
  11. DEXAMETHASON [Concomitant]
     Active Substance: DEXAMETHASONE
  12. HYDROCO/APAP [Concomitant]
     Active Substance: ACETAMINOPHEN\HYDROCODONE
  13. MUPIROCIN CRE [Concomitant]

REACTIONS (1)
  - Brain neoplasm malignant [None]

NARRATIVE: CASE EVENT DATE: 20180326
